FAERS Safety Report 19641896 (Version 7)
Quarter: 2022Q1

REPORT INFORMATION
  Report Type: Report from Study
  Country: US (occurrence: US)
  Receive Date: 20210731
  Receipt Date: 20220326
  Transmission Date: 20220423
  Serious: Yes (Other)
  Sender: FDA-Public Use
  Company Number: US-NOVARTISPH-NVSC2021US170721

PATIENT
  Age: 73 Year
  Sex: Female

DRUGS (4)
  1. ENTRESTO [Suspect]
     Active Substance: SACUBITRIL\VALSARTAN
     Indication: Cardiac failure
     Dosage: 50 MG, BID (24/26 MG)
     Route: 048
     Dates: start: 20210708
  2. ENTRESTO [Suspect]
     Active Substance: SACUBITRIL\VALSARTAN
     Indication: Cardiac failure chronic
  3. LOSARTAN [Suspect]
     Active Substance: LOSARTAN
     Indication: Product used for unknown indication
     Dosage: UNK
     Route: 065
  4. UNSPECIFIED INGREDIENT [Concomitant]
     Active Substance: UNSPECIFIED INGREDIENT
     Indication: Product used for unknown indication
     Dosage: UNK
     Route: 065

REACTIONS (18)
  - Respiratory tract infection [Unknown]
  - Malaise [Unknown]
  - Productive cough [Not Recovered/Not Resolved]
  - Weight decreased [Unknown]
  - Throat clearing [Unknown]
  - Musculoskeletal stiffness [Unknown]
  - Gout [Unknown]
  - Pain in extremity [Unknown]
  - Renal disorder [Unknown]
  - Arthralgia [Unknown]
  - Feeding disorder [Recovering/Resolving]
  - Anosmia [Unknown]
  - Dyspepsia [Unknown]
  - Gait inability [Unknown]
  - Hypersensitivity [Unknown]
  - Nausea [Recovered/Resolved]
  - Vomiting [Recovering/Resolving]
  - Dyspnoea [Unknown]

NARRATIVE: CASE EVENT DATE: 20210914
